FAERS Safety Report 4924915-0 (Version None)
Quarter: 2006Q1

REPORT INFORMATION
  Report Type: 
  Country: None (occurrence: None)
  Receive Date: 20060222
  Receipt Date: 20060209
  Transmission Date: 20060701
  Serious: Yes (Hospitalization)
  Sender: FDA-Public Use
  Company Number: 2005-135783-NL

PATIENT
  Sex: Male

DRUGS (4)
  1. MIRTAZAPINE [Suspect]
     Indication: DEPRESSION
     Dosage: DF
     Dates: end: 20040501
  2. MIRTAZAPINE [Suspect]
     Indication: PAIN
     Dosage: DF
     Dates: end: 20040501
  3. CITALOPRAM HYDROBROMIDE [Suspect]
     Indication: PAIN
     Dosage: 40 MG
     Dates: start: 20020101
  4. MORPHINE [Concomitant]

REACTIONS (4)
  - HYPERHIDROSIS [None]
  - INSOMNIA [None]
  - MUSCLE TWITCHING [None]
  - PLEURAL EFFUSION [None]
